FAERS Safety Report 5269665-9 (Version None)
Quarter: 2007Q1

REPORT INFORMATION
  Report Type: 
  Country: None (occurrence: None)
  Receive Date: 20070313
  Receipt Date: 20070223
  Transmission Date: 20070707
  Serious: Yes (Death, Other)
  Sender: FDA-Public Use
  Company Number: ENT 2007-0025

PATIENT
  Age: 75 Year
  Sex: Male

DRUGS (3)
  1. COMTAN [Suspect]
     Indication: PARKINSON'S DISEASE
     Dosage: 600 MG (200 MG, 3 IN 1 D) ORAL
     Route: 048
     Dates: start: 20050201, end: 20060901
  2. MIRAPEXIN [Concomitant]
  3. CARBIDOPA AND LEVODOPA [Concomitant]

REACTIONS (4)
  - CONDITION AGGRAVATED [None]
  - DYSPHAGIA [None]
  - FALL [None]
  - PARKINSON'S DISEASE [None]
